FAERS Safety Report 15296293 (Version 3)
Quarter: 2018Q3

REPORT INFORMATION
  Report Type: Report from Study
  Country: US (occurrence: US)
  Receive Date: 20180820
  Receipt Date: 20180921
  Transmission Date: 20181010
  Serious: Yes (Other)
  Sender: FDA-Public Use
  Company Number: US-BAYER-2018-139201

PATIENT
  Sex: Male

DRUGS (9)
  1. AMLODIPINE BESYLATE. [Concomitant]
     Active Substance: AMLODIPINE BESYLATE
     Dosage: UNK
  2. LOSARTAN POTASSIUM. [Concomitant]
     Active Substance: LOSARTAN POTASSIUM
     Dosage: UNK
  3. RIFAMYCIN [Concomitant]
     Active Substance: RIFAMYCIN
     Dosage: UNK
  4. NEXAVAR [Suspect]
     Active Substance: SORAFENIB
     Indication: HEPATIC CANCER
     Dosage: 400 MG, BID
     Route: 048
     Dates: start: 20180511, end: 2018
  5. GLIPIZIDE. [Concomitant]
     Active Substance: GLIPIZIDE
     Dosage: UNK
  6. INVOKANA [Concomitant]
     Active Substance: CANAGLIFLOZIN
     Dosage: UNK
  7. NEXAVAR [Suspect]
     Active Substance: SORAFENIB
     Indication: DIABETES MELLITUS
     Dosage: 400 MG, BID
     Route: 048
     Dates: start: 20180514, end: 2018
  8. AMLODIPINE [Concomitant]
     Active Substance: AMLODIPINE BESYLATE
     Dosage: UNK
  9. HYDROCHLOROTHIAZIDE. [Concomitant]
     Active Substance: HYDROCHLOROTHIAZIDE
     Dosage: UNK

REACTIONS (5)
  - Gait disturbance [Not Recovered/Not Resolved]
  - Decreased appetite [Not Recovered/Not Resolved]
  - Weight decreased [Not Recovered/Not Resolved]
  - Medical procedure [None]
  - Nausea [None]
